FAERS Safety Report 7315436-9 (Version None)
Quarter: 2011Q1

REPORT INFORMATION
  Report Type: 
  Country: None (occurrence: None)
  Receive Date: 20110225
  Receipt Date: 20110218
  Transmission Date: 20110831
  Serious: Yes (Other)
  Sender: FDA-Public Use
  Company Number: B0701878A

PATIENT
  Sex: Male

DRUGS (1)
  1. LANVIS [Suspect]
     Route: 065
     Dates: start: 20070101

REACTIONS (2)
  - NEPHROLITHIASIS [None]
  - RENAL DISORDER [None]
